FAERS Safety Report 14106579 (Version 1)
Quarter: 2017Q4

REPORT INFORMATION
  Report Type: Spontaneous
  Country: US (occurrence: US)
  Receive Date: 20171019
  Receipt Date: 20171019
  Transmission Date: 20180321
  Serious: No
  Sender: FDA-Public Use
  Company Number: US-PFIZER INC-2017448401

PATIENT
  Sex: Female

DRUGS (4)
  1. NARDIL [Suspect]
     Active Substance: PHENELZINE SULFATE
     Indication: ANXIETY
     Dosage: 30 MG, 2X/DAY (15MG, TWO IN THE MORNING AND TWO AT NIGHT)
  2. NARDIL [Suspect]
     Active Substance: PHENELZINE SULFATE
     Indication: PHOBIA
  3. NARDIL [Suspect]
     Active Substance: PHENELZINE SULFATE
     Indication: DEPRESSION
  4. CLONAZEPAM. [Concomitant]
     Active Substance: CLONAZEPAM
     Dosage: UNK

REACTIONS (3)
  - Intentional product misuse [Unknown]
  - Vomiting [Unknown]
  - Drug ineffective [Not Recovered/Not Resolved]
